FAERS Safety Report 5287232-8 (Version None)
Quarter: 2007Q1

REPORT INFORMATION
  Report Type: 
  Country: None (occurrence: None)
  Receive Date: 20070116
  Receipt Date: 20061009
  Transmission Date: 20070707
  Serious: No
  Sender: FDA-Public Use
  Company Number: 2006SP003599

PATIENT
  Age: 65 Year
  Sex: Male
  Weight: 90.7194 kg

DRUGS (4)
  1. LUNESTA [Suspect]
     Indication: INITIAL INSOMNIA
     Dosage: 3 MG; ORAL
     Route: 048
     Dates: start: 20060801, end: 20061009
  2. KLONOPIN [Concomitant]
  3. SEROQUEL [Concomitant]
  4. PRILOSEC [Concomitant]

REACTIONS (1)
  - NEUROPATHY [None]
